FAERS Safety Report 7793129-1 (Version None)
Quarter: 2011Q4

REPORT INFORMATION
  Report Type: 
  Country: None (occurrence: None)
  Receive Date: 20111003
  Receipt Date: 20110923
  Transmission Date: 20120403
  Serious: Yes (Other)
  Sender: FDA-Public Use
  Company Number: ES-JNJFOC-20110910895

PATIENT
  Age: 5 Decade
  Sex: Female

DRUGS (6)
  1. RISPERDAL CONSTA [Suspect]
     Route: 030
  2. OLANZAPINE [Suspect]
     Indication: SCHIZOPHRENIA, PARANOID TYPE
     Route: 065
  3. OLANZAPINE [Suspect]
     Route: 065
  4. TOPAMAX [Suspect]
     Indication: SCHIZOPHRENIA, PARANOID TYPE
     Route: 065
  5. CLONAZEPAM [Concomitant]
     Indication: SCHIZOPHRENIA, PARANOID TYPE
     Route: 065
  6. RISPERDAL CONSTA [Suspect]
     Indication: SCHIZOPHRENIA, PARANOID TYPE
     Route: 030

REACTIONS (2)
  - TARDIVE DYSKINESIA [None]
  - OBSESSIVE-COMPULSIVE DISORDER [None]
